FAERS Safety Report 24145911 (Version 3)
Quarter: 2025Q1

REPORT INFORMATION
  Report Type: Spontaneous
  Country: FR (occurrence: FR)
  Receive Date: 20240729
  Receipt Date: 20250107
  Transmission Date: 20250408
  Serious: Yes (Congenital Anomaly, Other)
  Sender: GLAXOSMITHKLINE
  Company Number: None

PATIENT

DRUGS (13)
  1. ALBUTEROL [Suspect]
     Active Substance: ALBUTEROL
     Indication: Cystic fibrosis
     Route: 064
     Dates: start: 20231029, end: 20240510
  2. IPRATROPIUM BROMIDE\FENOTEROL HYDROBROMIDE [Suspect]
     Active Substance: FENOTEROL HYDROBROMIDE\IPRATROPIUM BROMIDE
     Indication: Cystic fibrosis
     Dosage: 1 DF, TID
     Route: 064
     Dates: start: 20240516
  3. PULMOZYME [Suspect]
     Active Substance: DORNASE ALFA
     Indication: Cystic fibrosis
     Dosage: 2500 U/2.5 ML
     Route: 064
     Dates: start: 20231029, end: 20240516
  4. CREON [Suspect]
     Active Substance: PANCRELIPASE AMYLASE\PANCRELIPASE LIPASE\PANCRELIPASE PROTEASE
     Indication: Cystic fibrosis
     Dosage: 15 DF, QD
     Route: 064
     Dates: start: 20231029
  5. ESOMEPRAZOLE [Suspect]
     Active Substance: ESOMEPRAZOLE
     Indication: Cystic fibrosis
     Dosage: 20 MG, QD
     Route: 064
     Dates: start: 20231029
  6. ELEXACAFTOR\IVACAFTOR\TEZACAFTOR [Suspect]
     Active Substance: ELEXACAFTOR\IVACAFTOR\TEZACAFTOR
     Indication: Cystic fibrosis
     Dosage: 2 DF, QD (KAFTRIO 75 MG/50 MG/100 MG)
     Route: 064
     Dates: start: 20231029
  7. COLISTIMETHATE SODIUM [Suspect]
     Active Substance: COLISTIMETHATE SODIUM
     Indication: Cystic fibrosis
     Dosage: 2 IU, BID (1 MILLION UI))
     Route: 064
     Dates: start: 20231029
  8. SINGULAIR [Suspect]
     Active Substance: MONTELUKAST SODIUM
     Indication: Cystic fibrosis
     Route: 064
     Dates: start: 20240516
  9. INNOVAIR [Suspect]
     Active Substance: BECLOMETHASONE DIPROPIONATE\FORMOTEROL
     Indication: Cystic fibrosis
     Dosage: 2 DF, BID
     Route: 064
     Dates: start: 20231029
  10. CETIRIZINE HYDROCHLORIDE [Suspect]
     Active Substance: CETIRIZINE HYDROCHLORIDE
     Indication: Cystic fibrosis
     Dosage: 20 MG, QD
     Route: 064
     Dates: start: 20231029
  11. SPIRIVA RESPIMAT [Suspect]
     Active Substance: TIOTROPIUM BROMIDE
     Indication: Cystic fibrosis
     Dosage: 2 DF, QD
     Route: 064
     Dates: start: 20231029
  12. KALYDECO [Suspect]
     Active Substance: IVACAFTOR
     Indication: Cystic fibrosis
     Dosage: 1 DF, QD
     Route: 064
     Dates: start: 20231029
  13. PANCRELIPASE [Suspect]
     Active Substance: PANCRELIPASE
     Indication: Cystic fibrosis
     Dosage: 3 DF, TID
     Route: 064
     Dates: start: 20231029

REACTIONS (5)
  - Left-to-right cardiac shunt [Not Recovered/Not Resolved]
  - Amniotic fluid index increased [Recovered/Resolved]
  - Foetal macrosomia [Recovered/Resolved]
  - Foetal exposure during pregnancy [Unknown]
  - Conjunctivitis [Not Recovered/Not Resolved]

NARRATIVE: CASE EVENT DATE: 20240606
